FAERS Safety Report 4995427-3 (Version None)
Quarter: 2006Q1

REPORT INFORMATION
  Report Type: 
  Country: None (occurrence: None)
  Receive Date: 20060315
  Receipt Date: 20060103
  Transmission Date: 20060701
  Serious: Yes (Other)
  Sender: FDA-Public Use
  Company Number: 430990

PATIENT
  Sex: Female

DRUGS (1)
  1. BONIVA [Suspect]
     Indication: DRUG USE FOR UNKNOWN INDICATION
     Dosage: ORAL
     Route: 048
     Dates: start: 20051215

REACTIONS (5)
  - ADVERSE EVENT [None]
  - ARTHRALGIA [None]
  - ASTHENIA [None]
  - DIZZINESS [None]
  - MYALGIA [None]
